FAERS Safety Report 7754705-5 (Version None)
Quarter: 2011Q3

REPORT INFORMATION
  Report Type: 
  Country: None (occurrence: None)
  Receive Date: 20110915
  Receipt Date: 20110901
  Transmission Date: 20111222
  Serious: Yes (Other)
  Sender: FDA-Public Use
  Company Number: PHHY2011BR78500

PATIENT
  Age: 83 Year
  Sex: Female

DRUGS (1)
  1. DIOVAN [Suspect]
     Indication: HYPERTENSION
     Dosage: 160 MG, (1 TABLET A DAY)
     Dates: start: 20010101

REACTIONS (2)
  - GAIT DISTURBANCE [None]
  - CEREBROVASCULAR ACCIDENT [None]
